FAERS Safety Report 21658062 (Version 1)
Quarter: 2022Q4

REPORT INFORMATION
  Report Type: Spontaneous
  Country: DE (occurrence: None)
  Receive Date: 20221129
  Receipt Date: 20221129
  Transmission Date: 20230113
  Serious: Yes (Other)
  Sender: FDA-Public Use
  Company Number: 2022A388326

PATIENT
  Age: 61 Year
  Sex: Male

DRUGS (5)
  1. FASENRA [Suspect]
     Active Substance: BENRALIZUMAB
     Indication: Asthma
     Dosage: EVERY EIGHT WEEKS
     Route: 058
     Dates: start: 202109
  2. SYMBICORT [Concomitant]
     Active Substance: BUDESONIDE\FORMOTEROL FUMARATE DIHYDRATE
     Dosage: 320 / 9 TWO TIMES A DAY
  3. SPIRIVA [Concomitant]
     Active Substance: TIOTROPIUM BROMIDE MONOHYDRATE
     Dosage: 2.5 2-0-0
  4. BEROTEC [Concomitant]
     Active Substance: FENOTEROL HYDROBROMIDE
     Dosage: AS NEEDED
  5. PREDNISOLONE [Concomitant]
     Active Substance: PREDNISOLONE
     Dosage: IN CASE OF EMERGENCY

REACTIONS (1)
  - Nasal polyps [Not Recovered/Not Resolved]

NARRATIVE: CASE EVENT DATE: 20220101
